FAERS Safety Report 19753677 (Version 1)
Quarter: 2021Q3

REPORT INFORMATION
  Report Type: Report from Study
  Country: US (occurrence: US)
  Receive Date: 20210826
  Receipt Date: 20210826
  Transmission Date: 20211014
  Serious: Yes (Hospitalization)
  Sender: FDA-Public Use
  Company Number: US-BAXTER-2021BAX026357

PATIENT
  Age: 33 Year
  Sex: Male
  Weight: 79 kg

DRUGS (16)
  1. CYTARABINE. [Suspect]
     Active Substance: CYTARABINE
     Dosage: 4TH COURSE, TOTAL DOSE ADMINISTERED THIS COURSE 1200 MG, LAST ADMINISTERED DATE: 06MAY2021
     Route: 065
  2. METHOTREXATE SODIUM. [Suspect]
     Active Substance: METHOTREXATE SODIUM
     Indication: PRODUCT USED FOR UNKNOWN INDICATION
     Dosage: 1?3 COURSES
     Route: 065
     Dates: start: 20200805
  3. DEXAMETHASONE. [Suspect]
     Active Substance: DEXAMETHASONE
     Indication: PRODUCT USED FOR UNKNOWN INDICATION
     Dosage: 1?3 COURSES
     Route: 065
     Dates: start: 20200805
  4. DEXAMETHASONE. [Suspect]
     Active Substance: DEXAMETHASONE
     Dosage: 4TH COURSE, TOTAL DOSE ADMINISTERED THIS COURSE 280 MG, LAST ADMINISTERED DATE: 18APR2021
     Route: 065
  5. VINCRISTINE SULFATE. [Suspect]
     Active Substance: VINCRISTINE SULFATE
     Indication: PRODUCT USED FOR UNKNOWN INDICATION
     Dosage: 1?3 COURSES
     Route: 065
     Dates: start: 20200805
  6. VINCRISTINE SULFATE. [Suspect]
     Active Substance: VINCRISTINE SULFATE
     Dosage: 4TH COURSE, TOTAL DOSE ADMINISTERED THIS COURSE 6 MG, LAST ADMINISTERED DATE: 12APR2021
     Route: 065
  7. CYCLOPHOSPHAMIDE FOR INJECTION, USP [Suspect]
     Active Substance: CYCLOPHOSPHAMIDE
     Dosage: 4TH COURSE, TOTAL DOSE ADMINISTERED THIS COURSE 2060 MG, LAST ADMINISTERED DATE: 26APR2021
     Route: 065
  8. CYTARABINE. [Suspect]
     Active Substance: CYTARABINE
     Indication: PRODUCT USED FOR UNKNOWN INDICATION
     Dosage: 1?3 COURSES
     Route: 065
     Dates: start: 20200805
  9. DOXIL [Suspect]
     Active Substance: DOXORUBICIN HYDROCHLORIDE
     Dosage: 4TH COURSE, TOTAL DOSE ADMINISTERED THIS COURSE 156 MG, LAST ADMINISTERED DATE: 12APR2021
     Route: 065
  10. DOXIL [Suspect]
     Active Substance: DOXORUBICIN HYDROCHLORIDE
     Indication: PRODUCT USED FOR UNKNOWN INDICATION
     Dosage: 1?3 COURSES
     Route: 065
     Dates: start: 20200805
  11. ONCASPAR [Suspect]
     Active Substance: PEGASPARGASE
     Indication: PRODUCT USED FOR UNKNOWN INDICATION
     Dosage: 1?3 COURSES
     Route: 065
     Dates: start: 20200805
  12. THIOGUANINE [Suspect]
     Active Substance: THIOGUANINE
     Indication: PRODUCT USED FOR UNKNOWN INDICATION
     Dosage: 1?3 COURSES
     Route: 065
     Dates: start: 20200805
  13. CYCLOPHOSPHAMIDE FOR INJECTION, USP [Suspect]
     Active Substance: CYCLOPHOSPHAMIDE
     Indication: PRODUCT USED FOR UNKNOWN INDICATION
     Dosage: 1?3 COURSES
     Route: 065
     Dates: start: 20200805
  14. METHOTREXATE SODIUM. [Suspect]
     Active Substance: METHOTREXATE SODIUM
     Dosage: 4TH COURSE, TOTAL DOSE ADMINISTERED THIS COURSE 45 MG,  LAST ADMINISTERED DATE: 03MAY2021
     Route: 065
  15. ONCASPAR [Suspect]
     Active Substance: PEGASPARGASE
     Dosage: 4TH COURSE, TOTAL DOSE ADMINISTERED THIS COURSE 3750 MG, LAST ADMINISTERED DATE: 01APR2021
     Route: 065
  16. THIOGUANINE [Suspect]
     Active Substance: THIOGUANINE
     Dosage: 4TH COURSE, TOTAL DOSE ADMINISTERED THIS COURSE1560 MG, LAST ADMINISTERED DATE: 08MAY2021
     Route: 065

REACTIONS (1)
  - Febrile neutropenia [Not Recovered/Not Resolved]

NARRATIVE: CASE EVENT DATE: 20210508
